FAERS Safety Report 9370950 (Version 1)
Quarter: 2013Q2

REPORT INFORMATION
  Report Type: Spontaneous
  Country: HR (occurrence: HR)
  Receive Date: 20130627
  Receipt Date: 20130627
  Transmission Date: 20140414
  Serious: Yes (Other)
  Sender: FDA-Public Use
  Company Number: HR-ROCHE-1240573

PATIENT
  Age: 76 Year
  Sex: Male
  Weight: 85 kg

DRUGS (5)
  1. XELODA [Suspect]
     Indication: COLON CANCER
     Route: 048
     Dates: start: 201305
  2. PREDUCTAL [Concomitant]
     Indication: HYPERTENSION
     Route: 048
  3. OMACOR [Concomitant]
     Indication: HYPERTENSION
     Route: 048
  4. ZYLLT [Concomitant]
     Indication: HYPERTENSION
     Route: 048
  5. LORISTA H [Concomitant]
     Indication: HYPERTENSION
     Route: 048

REACTIONS (3)
  - Wound [Recovering/Resolving]
  - Fungal skin infection [Recovering/Resolving]
  - Pruritus [Recovering/Resolving]
